FAERS Safety Report 6755770-4 (Version None)
Quarter: 2010Q2

REPORT INFORMATION
  Report Type: 
  Country: None (occurrence: None)
  Receive Date: 20100524
  Receipt Date: 20100302
  Transmission Date: 20101027
  Serious: No
  Sender: FDA-Public Use
  Company Number: 008138

PATIENT
  Sex: Female
  Weight: 61.2 kg

DRUGS (6)
  1. CIMZIA [Suspect]
     Indication: CROHN'S DISEASE
     Dosage: (400 MG SUBCUTANEOUS)
     Route: 058
     Dates: start: 20090601
  2. IMURAN [Concomitant]
  3. ZOLOFT [Concomitant]
  4. ALPRAZOLAM [Concomitant]
  5. ASPIRIN /01428701/ [Concomitant]
  6. TRAMADOL [Concomitant]

REACTIONS (1)
  - ABNORMAL SENSATION IN EYE [None]
